FAERS Safety Report 7261388-X (Version None)
Quarter: 2011Q1

REPORT INFORMATION
  Report Type: 
  Country: None (occurrence: None)
  Receive Date: 20110130
  Receipt Date: 20101021
  Transmission Date: 20110831
  Serious: No
  Sender: FDA-Public Use
  Company Number: US-ABBOTT-10P-163-0680105-00

PATIENT
  Age: 32 Year
  Sex: Female

DRUGS (5)
  1. HUMIRA [Suspect]
     Indication: CROHN'S DISEASE
     Dosage: FOLLOWING LOADING DOSE PROTOCOL; 29 OCT 2010 WILL BE 40MG EOW
     Dates: start: 20100930
  2. VITAMINS MULTIPLE [Concomitant]
     Indication: VITAMIN SUPPLEMENTATION
     Dosage: ONCE DAILY
  3. FIBERCON [Concomitant]
     Indication: FAECES HARD
  4. LAMICTAL [Concomitant]
     Indication: CONVULSION
  5. FERREX [Concomitant]
     Indication: MINERAL SUPPLEMENTATION
     Dosage: ONCE A DAY

REACTIONS (4)
  - INJECTION SITE PAIN [None]
  - HEADACHE [None]
  - MYALGIA [None]
  - ASTHENIA [None]
